FAERS Safety Report 4796441-3 (Version None)
Quarter: 2005Q4

REPORT INFORMATION
  Report Type: 
  Country: None (occurrence: None)
  Receive Date: 20051007
  Receipt Date: 20050929
  Transmission Date: 20060501
  Serious: Yes (Life-Threatening, Hospitalization, Disabling)
  Sender: FDA-Public Use
  Company Number: 05H-124-0302796-00

PATIENT
  Age: 38 Year
  Sex: Male

DRUGS (1)
  1. ABOCAIN SPINAL INJECTION (BUPIVACAINE HYDROCHLORIDE) [Suspect]
     Indication: SPINAL ANAESTHESIA

REACTIONS (4)
  - AMNESIA [None]
  - DISORIENTATION [None]
  - LOSS OF CONSCIOUSNESS [None]
  - RESTLESSNESS [None]
